FAERS Safety Report 11309829 (Version 3)
Quarter: 2015Q4

REPORT INFORMATION
  Report Type: Spontaneous
  Country: JP (occurrence: JP)
  Receive Date: 20150724
  Receipt Date: 20151015
  Transmission Date: 20160304
  Serious: Yes (Other)
  Sender: FDA-Public Use
  Company Number: JP-BAUSCH-BL-2015-017917

PATIENT
  Age: 56 Year
  Sex: Male

DRUGS (7)
  1. YOUPIS [Concomitant]
     Indication: PRODUCT USED FOR UNKNOWN INDICATION
     Route: 048
     Dates: start: 20150714, end: 20150714
  2. MAGCOROL P [Concomitant]
     Indication: ENDOSCOPY LARGE BOWEL
     Route: 048
     Dates: start: 20150713, end: 20150713
  3. PETHIDINE HYDROCHLORIDE [Concomitant]
     Active Substance: MEPERIDINE
     Indication: SEDATION
     Route: 042
     Dates: start: 20150714, end: 20150714
  4. MIDAZOLAM [Concomitant]
     Active Substance: MIDAZOLAM\MIDAZOLAM HYDROCHLORIDE
     Indication: SEDATION
     Route: 042
     Dates: start: 20150714, end: 20150714
  5. LAXOBERON [Concomitant]
     Active Substance: SODIUM PICOSULFATE
     Indication: ENDOSCOPY LARGE BOWEL
     Route: 048
     Dates: start: 20150713, end: 20150713
  6. BAROS ANTIFOAMING [Concomitant]
     Indication: ABDOMINAL DISTENSION
     Route: 048
     Dates: start: 20150714, end: 20150714
  7. MOVIPREP [Suspect]
     Active Substance: ASCORBIC ACID\POLYETHYLENE GLYCOL 3350\POTASSIUM CHLORIDE\SODIUM ASCORBATE\SODIUM CHLORIDE\SODIUM SULFATE
     Indication: ENDOSCOPY LARGE BOWEL
     Route: 048
     Dates: start: 20150714, end: 20150714

REACTIONS (2)
  - Pneumatosis intestinalis [Recovering/Resolving]
  - Abdominal pain [Recovering/Resolving]

NARRATIVE: CASE EVENT DATE: 20150714
